FAERS Safety Report 9861243 (Version 2)
Quarter: 2014Q1

REPORT INFORMATION
  Report Type: Spontaneous
  Country: BR (occurrence: BR)
  Receive Date: 20140202
  Receipt Date: 20140202
  Transmission Date: 20141002
  Serious: No
  Sender: FDA-Public Use
  Company Number: BR-ALLERGAN-1304318US

PATIENT
  Age: 50 Year
  Sex: Female

DRUGS (2)
  1. BOTOX [Suspect]
     Indication: SKIN WRINKLING
     Dosage: UNK UNK, SINGLE
     Route: 030
     Dates: start: 20121217, end: 20121217
  2. SURGIDERM [Suspect]
     Indication: SKIN WRINKLING
     Dosage: 0.8 ML, SINGLE
     Dates: start: 20121217, end: 20121217

REACTIONS (4)
  - Herpes dermatitis [Not Recovered/Not Resolved]
  - Oedema [Not Recovered/Not Resolved]
  - Hyperaesthesia [Not Recovered/Not Resolved]
  - Oral discharge [Not Recovered/Not Resolved]
